FAERS Safety Report 5395536-3 (Version None)
Quarter: 2007Q3

REPORT INFORMATION
  Report Type: 
  Country: None (occurrence: None)
  Receive Date: 20070718
  Receipt Date: 20060612
  Transmission Date: 20080115
  Serious: Yes (Hospitalization)
  Sender: FDA-Public Use
  Company Number: 2006075421

PATIENT
  Age: 38 Year
  Sex: Female
  Weight: 89.8122 kg

DRUGS (1)
  1. CELEBREX [Suspect]
     Indication: PAIN
     Dosage: 200 MG 9200 MG,1 IN 1D)

REACTIONS (1)
  - CEREBROVASCULAR ACCIDENT [None]
